FAERS Safety Report 9512687 (Version 2)
Quarter: 2013Q4

REPORT INFORMATION
  Report Type: Spontaneous
  Country: US (occurrence: US)
  Receive Date: 20130910
  Receipt Date: 20131209
  Transmission Date: 20140711
  Serious: Yes (Death)
  Sender: FDA-Public Use
  Company Number: US-ASTELLAS-2013US007074

PATIENT
  Age: 71 Year
  Sex: Male
  Weight: 77 kg

DRUGS (1)
  1. XTANDI [Suspect]
     Indication: PROSTATE CANCER
     Dosage: 160 MG, UID/QD
     Route: 048
     Dates: start: 201210, end: 20130627

REACTIONS (9)
  - Metastases to liver [Fatal]
  - Gastrooesophageal reflux disease [Unknown]
  - Alopecia [Unknown]
  - Hyponatraemia [Unknown]
  - Weight decreased [Unknown]
  - Dysgeusia [Unknown]
  - Neuropathy peripheral [Unknown]
  - Pain [Unknown]
  - Prostatic specific antigen increased [Unknown]
